FAERS Safety Report 25518012 (Version 2)
Quarter: 2025Q3

REPORT INFORMATION
  Report Type: Spontaneous
  Country: EU (occurrence: EU)
  Receive Date: 20250704
  Receipt Date: 20250810
  Transmission Date: 20251021
  Serious: Yes (Death)
  Sender: ALEXION PHARMACEUTICALS
  Company Number: None

PATIENT
  Age: 76 Year
  Sex: Male

DRUGS (2)
  1. IMFINZI [Interacting]
     Active Substance: DURVALUMAB
     Indication: Hepatic cancer
     Dates: start: 20250407, end: 20250407
  2. IMJUDO [Interacting]
     Active Substance: TREMELIMUMAB\TREMELIMUMAB-ACTL
     Indication: Hepatic cancer
     Dates: start: 20250407, end: 20250407

REACTIONS (2)
  - Immune-mediated enterocolitis [Fatal]
  - Large intestine perforation [Fatal]

NARRATIVE: CASE EVENT DATE: 20250411
